FAERS Safety Report 5047263-X (Version None)
Quarter: 2006Q3

REPORT INFORMATION
  Report Type: 
  Country: None (occurrence: None)
  Receive Date: 20060711
  Receipt Date: 20060630
  Transmission Date: 20061208
  Serious: Yes (Hospitalization)
  Sender: FDA-Public Use
  Company Number: FR-JNJFOC-20060700077

PATIENT
  Age: 25 Year
  Sex: Female
  Weight: 46 kg

DRUGS (4)
  1. REMICADE [Suspect]
     Dosage: 7TH INFUSION
     Route: 042
  2. REMICADE [Suspect]
     Indication: CROHN'S DISEASE
     Dosage: 7 INFUSIONS ADMINISTERED.
     Route: 042
  3. SEROPRAM [Concomitant]
  4. IMUREL [Concomitant]
     Indication: CROHN'S DISEASE
     Route: 048

REACTIONS (2)
  - PERIPHERAL SENSORY NEUROPATHY [None]
  - VISUAL DISTURBANCE [None]
